FAERS Safety Report 19057974 (Version 1)
Quarter: 2021Q1

REPORT INFORMATION
  Report Type: Spontaneous
  Country: US (occurrence: US)
  Receive Date: 20210324
  Receipt Date: 20210324
  Transmission Date: 20210420
  Serious: No
  Sender: FDA-Public Use
  Company Number: US-UPSHER-SMITH LABORATORIES, LLC-2020USL00601

PATIENT
  Age: 73 Year
  Sex: Female
  Weight: 66.67 kg

DRUGS (3)
  1. METAMUCIL [Concomitant]
     Active Substance: PLANTAGO SEED
     Dosage: UNK, 1X/DAY
     Route: 048
  2. PREVALITE [Suspect]
     Active Substance: CHOLESTYRAMINE
     Indication: DIARRHOEA
     Dosage: 11 G (2 PACKETS), 1X/DAY
     Route: 048
     Dates: start: 202010, end: 20201027
  3. UNSPECIFIED MEDICATIONS AND SUPPLEMENTS [Concomitant]

REACTIONS (10)
  - Rectal haemorrhage [Recovered/Resolved]
  - Gastrointestinal tract irritation [Recovered/Resolved]
  - Insomnia [Recovered/Resolved]
  - Proctalgia [Recovered/Resolved]
  - Hunger [Recovered/Resolved]
  - Diarrhoea [Recovered/Resolved]
  - Expired product administered [Recovered/Resolved]
  - Product dispensing error [Recovered/Resolved]
  - Fatigue [Recovered/Resolved]
  - Anal inflammation [Recovered/Resolved]

NARRATIVE: CASE EVENT DATE: 202010
